FAERS Safety Report 3977682 (Version 5)
Quarter: 2018Q4

REPORT INFORMATION
  Report Type: Spontaneous
  Country: JP (occurrence: JP)
  Receive Date: 20030725
  Receipt Date: 20181204
  Transmission Date: 20190205
  Serious: Yes (Death, Disabling, Other)
  Sender: FDA-Public Use
  Company Number: PHBS2003JP06904

PATIENT
  Age: 76 Year
  Sex: Male
  Weight: 44 kg

DRUGS (3)
  1. PRIMOBOLAN-DEPOT [Concomitant]
     Active Substance: METHENOLONE ENANTHATE
     Indication: PRODUCT USED FOR UNKNOWN INDICATION
     Route: 005
  2. DESFERAL [Suspect]
     Active Substance: DEFEROXAMINE MESYLATE
     Indication: MYELODYSPLASTIC SYNDROME
     Dosage: 500-1000 MG/3 TIMES A WEEK
     Route: 058
     Dates: start: 200202, end: 200208
  3. DESFERAL [Suspect]
     Active Substance: DEFEROXAMINE MESYLATE
     Indication: IRON OVERLOAD
     Dosage: 1000 MG, QD
     Route: 065

REACTIONS (30)
  - Mucormycosis [Fatal]
  - Swelling [Unknown]
  - Blood lactate dehydrogenase increased [Unknown]
  - Pulmonary congestion [Unknown]
  - Blood pressure decreased [Unknown]
  - Depressed level of consciousness [Fatal]
  - Blood urea increased [Fatal]
  - Cardiac failure [Unknown]
  - Haemoglobin decreased [Unknown]
  - Platelet count decreased [Fatal]
  - White blood cell count increased [Fatal]
  - Blood potassium increased [Fatal]
  - Renal disorder [Fatal]
  - Disseminated intravascular coagulation [Unknown]
  - Pain in extremity [Unknown]
  - C-reactive protein increased [Fatal]
  - Pyrexia [Fatal]
  - Multiple organ dysfunction syndrome [Unknown]
  - Hypophagia [Unknown]
  - Red blood cell count decreased [Unknown]
  - Haematocrit decreased [Unknown]
  - Lung infiltration [Fatal]
  - Pleural effusion [Unknown]
  - Pneumonia [Unknown]
  - Serum ferritin increased [Unknown]
  - Hypoxia [Unknown]
  - Respiratory rate decreased [Fatal]
  - Blood creatinine increased [Fatal]
  - Cellulitis [Unknown]
  - Hypotension [Unknown]

NARRATIVE: CASE EVENT DATE: 20020809
